FAERS Safety Report 20613884 (Version 2)
Quarter: 2022Q1

REPORT INFORMATION
  Report Type: Spontaneous
  Country: JP (occurrence: JP)
  Receive Date: 20220319
  Receipt Date: 20220328
  Transmission Date: 20220423
  Serious: Yes (Other)
  Sender: FDA-Public Use
  Company Number: JP-Teva Takeda Yakuhin-2022-JP-001167J

PATIENT
  Age: 81 Year
  Sex: Male
  Weight: 80 kg

DRUGS (2)
  1. ASPIRIN\LANSOPRAZOLE [Suspect]
     Active Substance: ASPIRIN\LANSOPRAZOLE
     Indication: Product used for unknown indication
     Dosage: UNK
     Route: 048
     Dates: start: 20210814, end: 202201
  2. ASPIRIN\LANSOPRAZOLE [Suspect]
     Active Substance: ASPIRIN\LANSOPRAZOLE
     Dosage: UNK
     Route: 048
     Dates: start: 202201, end: 20220117

REACTIONS (9)
  - Urinary bladder atrophy [Unknown]
  - Anal incontinence [Unknown]
  - Frequent bowel movements [Unknown]
  - Weight decreased [Unknown]
  - Pollakiuria [Recovering/Resolving]
  - Urinary incontinence [Recovering/Resolving]
  - Intestinal polyp [Unknown]
  - Faeces soft [Recovered/Resolved]
  - Diarrhoea [Recovered/Resolved]

NARRATIVE: CASE EVENT DATE: 20210801
